FAERS Safety Report 9188016 (Version 1)
Quarter: 2013Q1

REPORT INFORMATION
  Report Type: Spontaneous
  Country: US (occurrence: US)
  Receive Date: 20130325
  Receipt Date: 20130325
  Transmission Date: 20140127
  Serious: No
  Sender: FDA-Public Use
  Company Number: US-MYLANLABS-2012S1025416

PATIENT
  Sex: Female

DRUGS (5)
  1. FENTANYL TRANSDERMAL SYSTEM [Suspect]
     Indication: PAIN
     Dosage: Q72HR
     Route: 062
     Dates: start: 201210
  2. DILAUDID [Concomitant]
     Indication: PAIN
     Dates: start: 2012
  3. CRESTOR [Concomitant]
     Indication: BLOOD CHOLESTEROL INCREASED
  4. ENALAPRIL [Concomitant]
     Indication: BLOOD PRESSURE INCREASED
     Dates: start: 2010
  5. LEVEMIR [Concomitant]
     Indication: DIABETES MELLITUS

REACTIONS (2)
  - Abdominal distension [Not Recovered/Not Resolved]
  - Application site rash [Not Recovered/Not Resolved]
